FAERS Safety Report 17025322 (Version 1)
Quarter: 2019Q4

REPORT INFORMATION
  Report Type: Spontaneous
  Country: US (occurrence: US)
  Receive Date: 20191008
  Receipt Date: 20191008
  Transmission Date: 20200122
  Serious: No
  Sender: FDA-Public Use
  Company Number: None

PATIENT
  Age: 82 Year
  Sex: Male
  Weight: 77.11 kg

DRUGS (23)
  1. BISACODYL. [Concomitant]
     Active Substance: BISACODYL
  2. ALBUTEROL. [Concomitant]
     Active Substance: ALBUTEROL
  3. FEXOFENADINE [Concomitant]
     Active Substance: FEXOFENADINE HYDROCHLORIDE
  4. EZETIMIBE. [Concomitant]
     Active Substance: EZETIMIBE
  5. PSYLLIUM HUSK (WITH SUGAR) [Concomitant]
  6. ZOLPIDEM [Concomitant]
     Active Substance: ZOLPIDEM TARTRATE
  7. MIDODRINE [Concomitant]
     Active Substance: MIDODRINE
  8. MAG HYDROX/ALUMINUM HYD/SIMETH (MAALOX ORAL) [Concomitant]
  9. OXYMETAZOLINE [Concomitant]
     Active Substance: OXYMETAZOLINE
  10. ATORVASTATIN [Concomitant]
     Active Substance: ATORVASTATIN
  11. CLOTRIMAZOLE-BETAMETHASONE CREAM [Concomitant]
  12. FLUTICASONE PROPIONATE. [Concomitant]
     Active Substance: FLUTICASONE PROPIONATE
  13. CALCIUM CARBONATE. [Concomitant]
     Active Substance: CALCIUM CARBONATE
  14. MIDODRINE [Suspect]
     Active Substance: MIDODRINE
     Indication: ORTHOSTATIC HYPOTENSION
     Dosage: ?          QUANTITY:2 DF DOSAGE FORM;?
     Route: 048
     Dates: start: 20190801, end: 20190902
  15. POTASSIUM CHLORIDE. [Concomitant]
     Active Substance: POTASSIUM CHLORIDE
  16. ASPIRIN. [Concomitant]
     Active Substance: ASPIRIN
  17. DILTIAZEM. [Concomitant]
     Active Substance: DILTIAZEM
  18. ACETAMINOPHEN. [Concomitant]
     Active Substance: ACETAMINOPHEN
  19. APIXABAN [Concomitant]
     Active Substance: APIXABAN
  20. OMEPRAZOLE. [Concomitant]
     Active Substance: OMEPRAZOLE
  21. FLUDROCORTISONE [Concomitant]
     Active Substance: FLUDROCORTISONE
  22. DOCUSATE SODIUM. [Concomitant]
     Active Substance: DOCUSATE SODIUM
  23. MAGNESIUM OXIDE. [Concomitant]
     Active Substance: MAGNESIUM OXIDE

REACTIONS (1)
  - Tinnitus [None]

NARRATIVE: CASE EVENT DATE: 20190801
